FAERS Safety Report 18679870 (Version 1)
Quarter: 2020Q4

REPORT INFORMATION
  Report Type: Other
  Country: TH (occurrence: TH)
  Receive Date: 20201230
  Receipt Date: 20201230
  Transmission Date: 20210114
  Serious: Yes (Hospitalization, Other)
  Sender: FDA-Public Use
  Company Number: TH-HEALTHCARE PHARMACEUTICALS LTD.-2103623

PATIENT
  Age: 48 Year
  Sex: Female

DRUGS (1)
  1. ATENOLOL TABLETS USP [Suspect]
     Active Substance: ATENOLOL
     Indication: HYPERTENSION
     Route: 065

REACTIONS (4)
  - Hypertensive crisis [Recovered/Resolved]
  - Cardiomyopathy [Recovered/Resolved]
  - Acute pulmonary oedema [Recovered/Resolved]
  - Phaeochromocytoma crisis [Recovered/Resolved]
